FAERS Safety Report 4673939-X (Version None)
Quarter: 2005Q2

REPORT INFORMATION
  Report Type: 
  Country: None (occurrence: None)
  Receive Date: 20050523
  Receipt Date: 20050322
  Transmission Date: 20051028
  Serious: No
  Sender: FDA-Public Use
  Company Number: HQWYE548930MAR05

PATIENT
  Age: 29 Year
  Sex: Male
  Weight: 81.72 kg

DRUGS (1)
  1. ALAVERT D-12 (LORATADINE/PSEUDOEPHEDRINE SULFATE, TABLET, EXTENDED REL [Suspect]
     Indication: HYPERSENSITIVITY
     Dosage: 1 TABLET, ONCE, ORAL
     Route: 048
     Dates: start: 20050321, end: 20050321

REACTIONS (2)
  - DRY MOUTH [None]
  - NERVOUSNESS [None]
